FAERS Safety Report 19709260 (Version 2)
Quarter: 2022Q4

REPORT INFORMATION
  Report Type: Spontaneous
  Country: DE (occurrence: DE)
  Receive Date: 20210816
  Receipt Date: 20221020
  Transmission Date: 20230113
  Serious: Yes (Hospitalization, Other)
  Sender: FDA-Public Use
  Company Number: DE-NOVARTISPH-NVSC2021DE175466

PATIENT
  Age: 61 Year
  Sex: Male
  Weight: 85 kg

DRUGS (12)
  1. EPLERENONE [Suspect]
     Active Substance: EPLERENONE
     Indication: Product used for unknown indication
     Dosage: 50 MG, QD  (1-0-0-0, TABLETTEN)
     Route: 048
  2. TORSEMIDE [Suspect]
     Active Substance: TORSEMIDE
     Indication: Product used for unknown indication
     Dosage: 10 MG, QD (20 MG, 0.5-0-0-0, TABLETTEN)
     Route: 048
  3. XIPAMIDE [Suspect]
     Active Substance: XIPAMIDE
     Indication: Product used for unknown indication
     Dosage: 20 MG, QD ( 1-0-0-0, TABLETTEN)
     Route: 048
  4. ASPIRIN [Concomitant]
     Active Substance: ASPIRIN
     Indication: Product used for unknown indication
     Dosage: 100 MG, QD (1-0-0-0, TABLETTEN)
     Route: 048
  5. KALINOR [Concomitant]
     Indication: Product used for unknown indication
     Dosage: 1 DF, QD (2500|1565.66 MG, 1-0-0-0, BRAUSETABLETTE)
     Route: 048
  6. LORAZEPAM [Concomitant]
     Active Substance: LORAZEPAM
     Indication: Product used for unknown indication
     Dosage: 2.5 MG, BEI BEDARF MAXIMAL 2 TABLETTEN PRO TAG, SCHMELZTABLETTEN
     Route: 060
  7. PROPRANOLOL [Concomitant]
     Active Substance: PROPRANOLOL HYDROCHLORIDE
     Indication: Product used for unknown indication
     Dosage: 10 MG, 1-0-1-0, TABLETTEN
     Route: 048
  8. PANTOPRAZOLE SODIUM [Concomitant]
     Active Substance: PANTOPRAZOLE SODIUM
     Indication: Product used for unknown indication
     Dosage: 40 MG, 1-0-0-0, TABLETTEN
     Route: 048
  9. FENOTEROL HYDROBROMIDE\IPRATROPIUM BROMIDE [Concomitant]
     Active Substance: FENOTEROL HYDROBROMIDE\IPRATROPIUM BROMIDE
     Indication: Product used for unknown indication
     Dosage: UNK UNK, PRN (0.02|0.05 ?G, BEI BEDARF, DOSIERAEROSOL )
     Route: 055
  10. GLYCOPYRRONIUM\INDACATEROL [Concomitant]
     Active Substance: GLYCOPYRRONIUM\INDACATEROL
     Indication: Product used for unknown indication
     Dosage: UNK (50|110 ?G, 1-0-0-0, INHALATIONSKAPSELN)
  11. ROFLUMILAST [Concomitant]
     Active Substance: ROFLUMILAST
     Indication: Product used for unknown indication
     Dosage: 0.5 MG, 1-0-0-0, TABLETTEN
     Route: 048
  12. AMIODARONE [Concomitant]
     Active Substance: AMIODARONE
     Indication: Product used for unknown indication
     Dosage: 200 MG, 1-0-0-0, TABLETTEN
     Route: 048

REACTIONS (10)
  - Angina pectoris [Unknown]
  - Weight decreased [Unknown]
  - Fluid intake reduced [Unknown]
  - General physical health deterioration [Unknown]
  - Fatigue [Unknown]
  - Nausea [Unknown]
  - Dizziness [Unknown]
  - Constipation [Unknown]
  - Product prescribing error [Unknown]
  - Product prescribing error [Unknown]
